FAERS Safety Report 15581103 (Version 2)
Quarter: 2020Q1

REPORT INFORMATION
  Report Type: Report from Study
  Country: DE (occurrence: DE)
  Receive Date: 20181102
  Receipt Date: 20200221
  Transmission Date: 20200409
  Serious: Yes (Death)
  Sender: FDA-Public Use
  Company Number: PHHY2018DE143963

PATIENT
  Age: 72 Year
  Sex: Male

DRUGS (2)
  1. LEUPRORELIN [Suspect]
     Active Substance: LEUPROLIDE ACETATE
     Dosage: 5 MG, Q3MO
     Route: 058
     Dates: start: 20180806
  2. LEUPRORELIN [Suspect]
     Active Substance: LEUPROLIDE ACETATE
     Indication: PROSTATE CANCER
     Dosage: 5 MG, Q3MO
     Route: 058
     Dates: start: 20171113

REACTIONS (3)
  - Drug ineffective [Fatal]
  - Prostate cancer metastatic [Fatal]
  - Disease progression [Fatal]
